FAERS Safety Report 7220571-X (Version None)
Quarter: 2011Q1

REPORT INFORMATION
  Report Type: 
  Country: None (occurrence: None)
  Receive Date: 20110111
  Receipt Date: 20101231
  Transmission Date: 20110831
  Serious: Yes (Other)
  Sender: FDA-Public Use
  Company Number: CA-JNJFOC-20110101074

PATIENT
  Sex: Female
  Weight: 55 kg

DRUGS (5)
  1. REMICADE [Suspect]
     Indication: COLITIS ULCERATIVE
     Route: 042
  2. REMICADE [Suspect]
     Route: 042
  3. REMICADE [Suspect]
     Route: 042
  4. PREDNISONE [Concomitant]
     Dosage: FOR THE PAST MONTH
     Route: 048
  5. PREDNISONE [Concomitant]
     Dosage: HAD WEANED DOWN TO 10 MG
     Route: 048

REACTIONS (6)
  - CHILLS [None]
  - TREMOR [None]
  - INFLUENZA LIKE ILLNESS [None]
  - HYPERHIDROSIS [None]
  - DYSPHAGIA [None]
  - INFUSION RELATED REACTION [None]
